FAERS Safety Report 10507400 (Version 1)
Quarter: 2014Q4

REPORT INFORMATION
  Report Type: Spontaneous
  Country: US (occurrence: None)
  Receive Date: 20141008
  Receipt Date: 20141008
  Transmission Date: 20150528
  Serious: No
  Sender: FDA-Public Use
  Company Number: None

PATIENT
  Age: 66 Year
  Sex: Female

DRUGS (11)
  1. REVLIMID [Suspect]
     Active Substance: LENALIDOMIDE
     Dosage: 10MG, DAILY X21D/28D, ORALLY
     Route: 048
     Dates: start: 20130829, end: 20131119
  2. REVLIMID [Suspect]
     Active Substance: LENALIDOMIDE
     Indication: MYELODYSPLASTIC SYNDROME
     Dosage: 5MG, DAILY X21D/28D, ORALLY
     Route: 048
     Dates: start: 20131120
  3. VENLAFAXINE [Concomitant]
     Active Substance: VENLAFAXINE HYDROCHLORIDE
  4. ESOMEPRAZOLE [Concomitant]
     Active Substance: ESOMEPRAZOLE
  5. DICLOFENAC [Concomitant]
     Active Substance: DICLOFENAC
  6. LAMOTRIGINE. [Concomitant]
     Active Substance: LAMOTRIGINE
  7. LEVOTHRYOXINE [Concomitant]
     Active Substance: LEVOTHYROXINE
  8. LITHIUM [Concomitant]
     Active Substance: LITHIUM CARBONATE
  9. NYSTATIN. [Concomitant]
     Active Substance: NYSTATIN
  10. K-TAB [Concomitant]
     Active Substance: POTASSIUM CHLORIDE
  11. CLARINEX [Concomitant]
     Active Substance: DESLORATADINE

REACTIONS (1)
  - Neutropenia [None]

NARRATIVE: CASE EVENT DATE: 20140930
